FAERS Safety Report 12377012 (Version 1)
Quarter: 2016Q2

REPORT INFORMATION
  Report Type: Report from Study
  Country: US (occurrence: US)
  Receive Date: 20160517
  Receipt Date: 20160517
  Transmission Date: 20160815
  Serious: No
  Sender: FDA-Public Use
  Company Number: US-MALLINCKRODT-T201504176

PATIENT
  Age: 49 Year
  Sex: Female

DRUGS (5)
  1. AMPYRA [Concomitant]
     Active Substance: DALFAMPRIDINE
     Dosage: UNK
  2. REPOSITORY CORTICOTROPIN INJECTION [Suspect]
     Active Substance: CORTICOTROPIN
     Indication: MULTIPLE SCLEROSIS RELAPSE
     Dosage: 80 UNITS/ML, 1 ML Q DAY FOR 10 DAYS
     Route: 058
     Dates: start: 20150813, end: 20150822
  3. BACLOFEN. [Concomitant]
     Active Substance: BACLOFEN
     Dosage: UNK
  4. BETAFERON [Concomitant]
     Active Substance: INTERFERON BETA-1B
     Dosage: UNK
  5. REPOSITORY CORTICOTROPIN INJECTION [Suspect]
     Active Substance: CORTICOTROPIN
     Dosage: UNK
     Dates: start: 20150820, end: 20150827

REACTIONS (7)
  - Fatigue [Recovering/Resolving]
  - Inflammatory marker increased [Unknown]
  - Disorientation [Not Recovered/Not Resolved]
  - Antinuclear antibody increased [Unknown]
  - Hepatic enzyme increased [Unknown]
  - Muscle enzyme increased [Unknown]
  - Muscular weakness [Recovering/Resolving]

NARRATIVE: CASE EVENT DATE: 201508
